FAERS Safety Report 11867283 (Version 1)
Quarter: 2015Q4

REPORT INFORMATION
  Report Type: Spontaneous
  Country: US (occurrence: None)
  Receive Date: 20151223
  Receipt Date: 20151223
  Transmission Date: 20160305
  Serious: No
  Sender: FDA-Public Use
  Company Number: None

PATIENT
  Age: 59 Year
  Sex: Female

DRUGS (5)
  1. XALKORI [Suspect]
     Active Substance: CRIZOTINIB
     Indication: LUNG NEOPLASM MALIGNANT
     Route: 048
     Dates: start: 20151130, end: 20151214
  2. LEVETIRACETA [Concomitant]
  3. HYDROCODONE [Concomitant]
     Active Substance: HYDROCODONE
  4. LORAZEPAM. [Concomitant]
     Active Substance: LORAZEPAM
  5. DEXAMETHASONE. [Concomitant]
     Active Substance: DEXAMETHASONE

REACTIONS (5)
  - Nausea [None]
  - Diarrhoea [None]
  - Visual impairment [None]
  - Pruritus [None]
  - Vomiting [None]

NARRATIVE: CASE EVENT DATE: 20151214
